FAERS Safety Report 4808149-6 (Version None)
Quarter: 2005Q4

REPORT INFORMATION
  Report Type: 
  Country: None (occurrence: None)
  Receive Date: 20051021
  Receipt Date: 20041130
  Transmission Date: 20060501
  Serious: No
  Sender: FDA-Public Use
  Company Number: USA041184783

PATIENT
  Sex: Female

DRUGS (1)
  1. ZYPREXA [Suspect]

REACTIONS (2)
  - BONE MARROW DISORDER [None]
  - HAEMOGLOBIN DECREASED [None]
